FAERS Safety Report 10169960 (Version 1)
Quarter: 2014Q2

REPORT INFORMATION
  Report Type: Spontaneous
  Country: US (occurrence: US)
  Receive Date: 20140513
  Receipt Date: 20140513
  Transmission Date: 20141212
  Serious: Yes (Death, Hospitalization)
  Sender: FDA-Public Use
  Company Number: CHPA2014US006359

PATIENT
  Age: 97 Year
  Sex: Female

DRUGS (3)
  1. GAS-X EXTRA STRENGTH SOFTGELS [Suspect]
     Indication: FLATULENCE
     Dosage: 3 OR 4 DF, QD AS NEEDED
     Route: 048
     Dates: start: 2006, end: 2008
  2. GAS-X EXTRA STRENGTH SOFTGELS [Suspect]
     Indication: MALAISE
  3. GAS-X EXTRA STRENGTH SOFTGELS [Suspect]
     Indication: OFF LABEL USE

REACTIONS (2)
  - Death [Fatal]
  - Cerebrovascular accident [Recovered/Resolved]
